FAERS Safety Report 11848330 (Version 1)
Quarter: 2015Q4

REPORT INFORMATION
  Report Type: Spontaneous
  Country: PT (occurrence: PT)
  Receive Date: 20151217
  Receipt Date: 20151217
  Transmission Date: 20160305
  Serious: Yes (Other)
  Sender: FDA-Public Use
  Company Number: PT-B.I. PHARMACEUTICALS,INC./RIDGEFIELD-2015-BI-69479PO

PATIENT
  Age: 68 Year
  Sex: Male

DRUGS (5)
  1. DIAZEPAM. [Concomitant]
     Active Substance: DIAZEPAM
     Indication: DEPRESSION
     Route: 065
  2. TWYNSTA [Suspect]
     Active Substance: AMLODIPINE BESYLATE\TELMISARTAN
     Indication: BLOOD PRESSURE MEASUREMENT
     Dosage: (40/5)/ 40 MG OF TELMISARTAN AND 5 MG OF AMLODIPINE
     Route: 065
     Dates: start: 201505
  3. ADT [Concomitant]
     Active Substance: AMITRIPTYLINE HYDROCHLORIDE
     Indication: DEPRESSION
     Route: 065
  4. SYMVASTATIN [Concomitant]
     Indication: BLOOD CHOLESTEROL DECREASED
     Dosage: 40 MG
     Route: 065
  5. PANTOPRAZOLE [Concomitant]
     Active Substance: PANTOPRAZOLE SODIUM
     Indication: PRODUCT USED FOR UNKNOWN INDICATION
     Route: 065

REACTIONS (12)
  - Lymphocytosis [Unknown]
  - Constipation [Unknown]
  - Dehydration [Unknown]
  - Weight decreased [Unknown]
  - Diarrhoea [Unknown]
  - Thirst [Unknown]
  - Abdominal pain [Unknown]
  - Blood potassium increased [Unknown]
  - Vomiting [Unknown]
  - Sepsis [Unknown]
  - Suicidal ideation [Unknown]
  - Leukocytosis [Unknown]
